FAERS Safety Report 18883062 (Version 2)
Quarter: 2021Q3

REPORT INFORMATION
  Report Type: Spontaneous
  Country: US (occurrence: US)
  Receive Date: 20210211
  Receipt Date: 20210721
  Transmission Date: 20211014
  Serious: Yes (Death, Life-Threatening, Hospitalization)
  Sender: FDA-Public Use
  Company Number: US-TEVA-2021-US-1877277

PATIENT
  Age: 53 Year
  Sex: Male

DRUGS (3)
  1. DOXORUBICIN [Suspect]
     Active Substance: DOXORUBICIN
     Indication: SARCOMA METASTATIC
     Dosage: RIGHT HEPATIC ARTERY CHEMOEMBOLIZATION
     Route: 013
  2. PREDNISONE. [Suspect]
     Active Substance: PREDNISONE
     Indication: PRIMARY ADRENAL INSUFFICIENCY
     Dosage: 40 MILLIGRAM DAILY;
     Route: 048
  3. DOXORUBICIN [Suspect]
     Active Substance: DOXORUBICIN
     Indication: METASTASES TO LIVER

REACTIONS (4)
  - Alanine aminotransferase increased [Unknown]
  - Withdrawal syndrome [Fatal]
  - Aspartate aminotransferase increased [Unknown]
  - Adrenocortical insufficiency acute [Fatal]
